FAERS Safety Report 11396882 (Version 3)
Quarter: 2015Q3

REPORT INFORMATION
  Report Type: Spontaneous
  Country: IT (occurrence: IT)
  Receive Date: 20150819
  Receipt Date: 20150821
  Transmission Date: 20151125
  Serious: Yes (Hospitalization)
  Sender: FDA-Public Use
  Company Number: IT-SA-2015SA122615

PATIENT
  Age: 42 Year
  Sex: Male

DRUGS (6)
  1. KWIKPEN [Concomitant]
     Indication: TYPE 1 DIABETES MELLITUS
     Route: 058
  2. TRIATEC [Concomitant]
     Active Substance: RAMIPRIL
     Route: 048
  3. LANTUS [Suspect]
     Active Substance: INSULIN GLARGINE
     Indication: TYPE 1 DIABETES MELLITUS
     Dosage: DOSE:16 UNIT(S)
     Route: 058
  4. HUMALOG [Suspect]
     Active Substance: INSULIN LISPRO
     Indication: TYPE 1 DIABETES MELLITUS
     Dosage: STRENGTH- 100 IU/ML DOSE:17 UNIT(S)
     Route: 058
  5. CLOPIXOL [Concomitant]
     Active Substance: ZUCLOPENTHIXOL ACETATE
     Route: 030
  6. TAVANIC [Concomitant]
     Active Substance: LEVOFLOXACIN
     Route: 048

REACTIONS (3)
  - Diarrhoea [Recovered/Resolved]
  - Vomiting [Recovered/Resolved]
  - Diabetic ketoacidosis [Recovered/Resolved]

NARRATIVE: CASE EVENT DATE: 20150701
